FAERS Safety Report 11976378 (Version 1)
Quarter: 2016Q1

REPORT INFORMATION
  Report Type: Spontaneous
  Country: FR (occurrence: FR)
  Receive Date: 20160129
  Receipt Date: 20160129
  Transmission Date: 20160526
  Serious: Yes (Hospitalization)
  Sender: FDA-Public Use
  Company Number: FR-ROCHE-1702293

PATIENT
  Age: 58 Year
  Sex: Male

DRUGS (3)
  1. COPEGUS [Suspect]
     Active Substance: RIBAVIRIN
     Indication: VIRAL HEPATITIS CARRIER
     Route: 048
     Dates: start: 20140417, end: 20140820
  2. PEGASYS [Suspect]
     Active Substance: PEGINTERFERON ALFA-2A
     Indication: VIRAL HEPATITIS CARRIER
     Route: 048
     Dates: start: 20140417, end: 20140820
  3. SOVALDI [Suspect]
     Active Substance: SOFOSBUVIR
     Indication: VIRAL HEPATITIS CARRIER
     Route: 048
     Dates: start: 20140529, end: 20140820

REACTIONS (1)
  - Lung neoplasm malignant [Not Recovered/Not Resolved]
